FAERS Safety Report 4308658-2 (Version None)
Quarter: 2004Q1

REPORT INFORMATION
  Report Type: 
  Country: None (occurrence: None)
  Receive Date: 20040301
  Receipt Date: 20040212
  Transmission Date: 20041129
  Serious: Yes (Death)
  Sender: FDA-Public Use
  Company Number: S03-USA-02894-01

PATIENT
  Age: 18 Year
  Sex: Female

DRUGS (2)
  1. CELEXA [Suspect]
     Indication: STRESS SYMPTOMS
     Dates: start: 20020701, end: 20020701
  2. ALLERGY MEDICATION [Concomitant]

REACTIONS (2)
  - COMPLETED SUICIDE [None]
  - INJURY ASPHYXIATION [None]
